FAERS Safety Report 21377368 (Version 2)
Quarter: 2022Q4

REPORT INFORMATION
  Report Type: Spontaneous
  Country: JP (occurrence: JP)
  Receive Date: 20220926
  Receipt Date: 20221104
  Transmission Date: 20230112
  Serious: Yes (Death, Hospitalization, Other)
  Sender: FDA-Public Use
  Company Number: JP-ALLERGAN-2231003US

PATIENT
  Sex: Male

DRUGS (16)
  1. URSODIOL [Suspect]
     Active Substance: URSODIOL
     Indication: Product used for unknown indication
     Dosage: UNK
     Route: 048
  2. BEPERMINOGENE PERPLASMID [Suspect]
     Active Substance: BEPERMINOGENE PERPLASMID
     Indication: Product used for unknown indication
     Dosage: UNK
     Route: 030
     Dates: start: 20210720
  3. NICORANDIL [Concomitant]
     Active Substance: NICORANDIL
  4. GASCON [DIMETICONE] [Concomitant]
  5. PANTETHINE [Concomitant]
     Active Substance: PANTETHINE
  6. FOSRENOL [Concomitant]
     Active Substance: LANTHANUM CARBONATE
  7. NEXIUM [Concomitant]
     Active Substance: ESOMEPRAZOLE MAGNESIUM
  8. ASPIRIN [Concomitant]
     Active Substance: ASPIRIN
  9. FUROSEMIDE [Concomitant]
     Active Substance: FUROSEMIDE
  10. SULFAMETHOXAZOLE\TRIMETHOPRIM [Concomitant]
     Active Substance: SULFAMETHOXAZOLE\TRIMETHOPRIM
  11. LIVALO [Concomitant]
     Active Substance: PITAVASTATIN CALCIUM
  12. OLOPATADINE HYDROCHLORIDE [Concomitant]
     Active Substance: OLOPATADINE HYDROCHLORIDE
  13. NALFURAFINE HYDROCHLORIDE [Concomitant]
     Active Substance: NALFURAFINE HYDROCHLORIDE
  14. PREGABALIN [Concomitant]
     Active Substance: PREGABALIN
  15. NOVORAPID [Concomitant]
     Active Substance: INSULIN ASPART
  16. LANTUS [Concomitant]
     Active Substance: INSULIN GLARGINE

REACTIONS (5)
  - Cardio-respiratory arrest [Fatal]
  - Infective spondylitis [Recovered/Resolved]
  - Rectal ulcer [Not Recovered/Not Resolved]
  - Rectal haemorrhage [Not Recovered/Not Resolved]
  - Device failure [Unknown]

NARRATIVE: CASE EVENT DATE: 20210902
